FAERS Safety Report 9807710 (Version 5)
Quarter: 2014Q2

REPORT INFORMATION
  Report Type: Report from Study
  Country: US (occurrence: US)
  Receive Date: 20140110
  Receipt Date: 20140416
  Transmission Date: 20141212
  Serious: Yes (Hospitalization)
  Sender: FDA-Public Use
  Company Number: US-JNJFOC-20131217321

PATIENT
  Age: 59 Year
  Sex: Female
  Weight: 98.7 kg

DRUGS (36)
  1. XARELTO [Suspect]
     Indication: ANTICOAGULANT THERAPY
     Route: 048
     Dates: start: 20131007
  2. XARELTO [Suspect]
     Indication: CEREBROVASCULAR ACCIDENT PROPHYLAXIS
     Route: 048
     Dates: start: 20131007
  3. XARELTO [Suspect]
     Indication: ATRIAL FIBRILLATION
     Route: 048
     Dates: start: 20131007
  4. METHOTREXATE [Concomitant]
     Indication: RHEUMATOID ARTHRITIS
     Dosage: 15 MG AS DIRECTED 97 DAYS
     Route: 065
     Dates: start: 20131110
  5. NITROGLYCERIN [Concomitant]
     Indication: CHEST PAIN
     Dosage: 0.4 MG PRN
     Route: 065
     Dates: start: 20121121
  6. BENICAR [Concomitant]
     Indication: HYPERTENSION
     Route: 065
     Dates: start: 20130710
  7. PREDNISONE [Concomitant]
     Indication: CHRONIC OBSTRUCTIVE PULMONARY DISEASE
     Dosage: 10 MG TABLETS FOR 2 DAYS AND THEN 1 TABLET FOR 2 DAYS.
     Route: 065
     Dates: start: 20131231
  8. PREDNISONE [Concomitant]
     Indication: CHRONIC OBSTRUCTIVE PULMONARY DISEASE
     Dosage: 5 MG AS DIRECTED
     Route: 065
     Dates: start: 20140107
  9. AMIODARON [Concomitant]
     Indication: ATRIAL FIBRILLATION
     Route: 065
     Dates: start: 20131007
  10. ARFORMOTEROL [Concomitant]
     Indication: CHRONIC OBSTRUCTIVE PULMONARY DISEASE
     Dosage: 2 ML INTO LUNGS
     Route: 065
     Dates: start: 20130710
  11. PULMICORT [Concomitant]
     Indication: CHRONIC OBSTRUCTIVE PULMONARY DISEASE
     Dosage: 2 ML BY HIS BED SIDE
     Route: 065
     Dates: start: 20130710
  12. KLONOPIN [Concomitant]
     Indication: CONVULSION
     Route: 065
     Dates: start: 20121111
  13. ESOMEPRAZOLE [Concomitant]
     Indication: GASTROOESOPHAGEAL REFLUX DISEASE
     Route: 065
     Dates: start: 20120314
  14. FUROSEMIDE [Concomitant]
     Indication: SWELLING
     Dosage: AS PER NECESSARY
     Route: 065
     Dates: start: 20130316
  15. VITAMIN C [Concomitant]
     Indication: NUTRITIONAL SUPPLEMENTATION
     Route: 065
     Dates: start: 20131224
  16. VITAMIN C [Concomitant]
     Indication: NUTRITIONAL SUPPLEMENTATION
     Route: 065
     Dates: start: 20131216
  17. VITAMIN D [Concomitant]
     Indication: NUTRITIONAL SUPPLEMENTATION
     Route: 065
     Dates: start: 20131224
  18. RESTASIS [Concomitant]
     Indication: DRY EYE
     Dosage: 15 TT OU
     Route: 065
     Dates: start: 20121111
  19. DEXTROMETHORPHAN/GUAIFENESIN [Concomitant]
     Indication: RESPIRATORY TRACT CONGESTION
     Dosage: 1 TABLET
     Route: 065
     Dates: start: 20131216
  20. DOCUSATE SODIUM [Concomitant]
     Indication: ABNORMAL FAECES
     Dosage: 200MG QHS
     Route: 065
     Dates: start: 20131216
  21. FERROUS FUMARATE [Concomitant]
     Indication: NUTRITIONAL SUPPLEMENTATION
     Dosage: 1 CAPSULE BID
     Route: 065
     Dates: start: 20131216
  22. FOLIC ACID [Concomitant]
     Indication: NUTRITIONAL SUPPLEMENTATION
     Route: 065
     Dates: start: 20131110
  23. FOLIC ACID [Concomitant]
     Indication: NUTRITIONAL SUPPLEMENTATION
     Dosage: 1 CAPSULE BID
     Route: 065
     Dates: start: 20131216
  24. FLONASE [Concomitant]
     Indication: MULTIPLE ALLERGIES
     Dosage: 2 SPRAYS IN NOSE DAILY
     Route: 045
     Dates: start: 20130710
  25. INSULIN GLARGINE [Concomitant]
     Indication: DIABETES MELLITUS
     Dosage: 25 UNITS SUBQ Q WEEKLY
     Route: 058
     Dates: start: 20131222, end: 20131224
  26. VITAMIN B12 [Concomitant]
     Indication: NUTRITIONAL SUPPLEMENTATION
     Route: 065
     Dates: start: 20131110
  27. CRESTOR [Concomitant]
     Indication: HYPERLIPIDAEMIA
     Route: 065
     Dates: start: 20120314
  28. LYRICA [Concomitant]
     Indication: ANXIETY
     Route: 065
     Dates: start: 20120304
  29. MIRALAX [Concomitant]
     Indication: CONSTIPATION
     Dosage: 17 MG AS NEEDED
     Route: 065
     Dates: start: 20130316
  30. ZOFRAN [Concomitant]
     Indication: NAUSEA
     Dosage: 4 MG Q 6 HR PRN
     Route: 065
     Dates: start: 20130115
  31. BENICAR [Concomitant]
     Indication: HYPERTENSION
     Route: 065
     Dates: start: 20130710
  32. ROBAXIN [Concomitant]
     Indication: MUSCLE RELAXANT THERAPY
     Route: 065
     Dates: start: 20131007
  33. VITAMIN B12 [Concomitant]
     Indication: NUTRITIONAL SUPPLEMENTATION
     Dosage: 1 CAPSULE BID
     Route: 065
     Dates: start: 20131216
  34. VITAMIN B12 [Concomitant]
     Indication: NUTRITIONAL SUPPLEMENTATION
     Route: 065
     Dates: start: 20131110
  35. LEVALBUTEROL [Concomitant]
     Indication: CHRONIC OBSTRUCTIVE PULMONARY DISEASE
     Dosage: 2 PUFFS PER 6 HOUR AS NECESSARY
     Route: 065
     Dates: start: 20130710
  36. TOPAMAX [Concomitant]
     Indication: HEADACHE
     Dosage: 1 TABLET IN AM AND 2 TABLETS AT HS
     Route: 065
     Dates: start: 20120314

REACTIONS (5)
  - Respiratory distress [Recovered/Resolved]
  - Asthma [Recovered/Resolved]
  - Haemorrhagic anaemia [Recovered/Resolved]
  - Upper gastrointestinal haemorrhage [Recovered/Resolved]
  - Peripheral swelling [Unknown]
